FAERS Safety Report 4962115-9 (Version None)
Quarter: 2006Q2

REPORT INFORMATION
  Report Type: 
  Country: None (occurrence: None)
  Receive Date: 20060404
  Receipt Date: 20050406
  Transmission Date: 20061013
  Serious: Yes (Hospitalization, Disabling)
  Sender: FDA-Public Use
  Company Number: US-MERCK-0504USA01109

PATIENT
  Age: 58 Year
  Sex: Male
  Weight: 86 kg

DRUGS (8)
  1. VIOXX [Suspect]
     Indication: SHOULDER PAIN
     Route: 048
     Dates: start: 19991104, end: 20000521
  2. VIOXX [Suspect]
     Route: 048
  3. VIOXX [Suspect]
     Route: 048
     Dates: start: 20021010
  4. VIOXX [Suspect]
     Route: 048
  5. VIOXX [Suspect]
     Indication: SCIATICA
     Route: 048
     Dates: start: 19991104, end: 20000521
  6. VIOXX [Suspect]
     Route: 048
  7. VIOXX [Suspect]
     Route: 048
     Dates: start: 20021010
  8. VIOXX [Suspect]
     Route: 048

REACTIONS (4)
  - ABDOMINAL HERNIA [None]
  - ACUTE MYOCARDIAL INFARCTION [None]
  - PRESCRIBED OVERDOSE [None]
  - PRODUCTIVE COUGH [None]
